FAERS Safety Report 7732206-8 (Version None)
Quarter: 2011Q3

REPORT INFORMATION
  Report Type: 
  Country: None (occurrence: None)
  Receive Date: 20110906
  Receipt Date: 20110823
  Transmission Date: 20111222
  Serious: No
  Sender: FDA-Public Use
  Company Number: US-AMGEN-USASP2011029582

PATIENT
  Age: 81 Year
  Sex: Female

DRUGS (6)
  1. PRESERVISION EYE VITAMIN AND MINERAL SUPPL. [Concomitant]
     Dosage: UNK
  2. VITAMIN D                          /00318501/ [Concomitant]
     Dosage: UNK
  3. OMEPRAZOLE [Concomitant]
     Dosage: UNK
  4. SPIRIVA [Concomitant]
     Dosage: UNK
  5. FLAXSEED OIL [Concomitant]
     Dosage: UNK
  6. PROLIA [Suspect]
     Indication: OSTEOPOROSIS POSTMENOPAUSAL
     Dosage: 60 MG, Q6MO
     Dates: start: 20110501

REACTIONS (3)
  - PAIN IN EXTREMITY [None]
  - LIMB DISCOMFORT [None]
  - ABDOMINAL PAIN UPPER [None]
